FAERS Safety Report 16996868 (Version 1)
Quarter: 2019Q4

REPORT INFORMATION
  Report Type: Spontaneous
  Country: JP (occurrence: JP)
  Receive Date: 20191106
  Receipt Date: 20191106
  Transmission Date: 20200122
  Serious: Yes (Other)
  Sender: FDA-Public Use
  Company Number: JP-PFIZER INC-2019466531

PATIENT

DRUGS (2)
  1. MEDROL [Suspect]
     Active Substance: METHYLPREDNISOLONE
     Indication: IMMUNOSUPPRESSION
     Dosage: UNK
     Route: 048
  2. ITRIZOLE [Interacting]
     Active Substance: ITRACONAZOLE
     Indication: FUNGAL INFECTION

REACTIONS (2)
  - Drug interaction [Unknown]
  - Blood glucose increased [Unknown]
